FAERS Safety Report 17991527 (Version 2)
Quarter: 2020Q3

REPORT INFORMATION
  Report Type: Spontaneous
  Country: NL (occurrence: NL)
  Receive Date: 20200707
  Receipt Date: 20200929
  Transmission Date: 20201103
  Serious: Yes (Death, Other)
  Sender: FDA-Public Use
  Company Number: NVSC2020NL191638

PATIENT
  Age: 83 Year
  Sex: Male

DRUGS (5)
  1. PREDNISONE. [Suspect]
     Active Substance: PREDNISONE
     Indication: GLOMERULONEPHRITIS
  2. PREDNISONE. [Suspect]
     Active Substance: PREDNISONE
     Indication: MONOCLONAL GAMMOPATHY
  3. PREDNISONE. [Suspect]
     Active Substance: PREDNISONE
     Indication: CUTANEOUS VASCULITIS
     Dosage: 15 MG, QD, SLOWLY TAPERED DAILY DOSE OF 15 MG
     Route: 065
  4. PREDNISONE. [Suspect]
     Active Substance: PREDNISONE
     Indication: CRYOGLOBULINAEMIA
     Dosage: 60 MG, QD
     Route: 065
  5. RITUXIMAB. [Concomitant]
     Active Substance: RITUXIMAB
     Indication: PRODUCT USED FOR UNKNOWN INDICATION
     Dosage: UNK
     Route: 065

REACTIONS (5)
  - Cryoglobulinaemia [Fatal]
  - Proteinuria [Fatal]
  - Product use in unapproved indication [Unknown]
  - Glomerulonephritis [Fatal]
  - Rebound effect [Fatal]
